FAERS Safety Report 26192948 (Version 1)
Quarter: 2025Q4

REPORT INFORMATION
  Report Type: Spontaneous
  Country: US (occurrence: US)
  Receive Date: 20251223
  Receipt Date: 20251223
  Transmission Date: 20260118
  Serious: Yes (Other)
  Sender: ARGENX BVBA
  Company Number: US-ARGENX-2025-ARGX-US017938

PATIENT

DRUGS (2)
  1. VYVGART [Suspect]
     Active Substance: EFGARTIGIMOD ALFA-FCAB
     Indication: Myasthenia gravis
     Dosage: UNK, 1/WEEK
     Route: 065
     Dates: start: 202509
  2. VYVGART [Suspect]
     Active Substance: EFGARTIGIMOD ALFA-FCAB
     Indication: Chronic inflammatory demyelinating polyradiculoneuropathy

REACTIONS (4)
  - Thrombocytopenia [Unknown]
  - Cardiac therapeutic procedure [Unknown]
  - Leukopenia [Unknown]
  - Neutropenia [Unknown]
